FAERS Safety Report 13313745 (Version 1)
Quarter: 2017Q1

REPORT INFORMATION
  Report Type: Spontaneous
  Country: US (occurrence: US)
  Receive Date: 20170309
  Receipt Date: 20170309
  Transmission Date: 20170428
  Serious: No
  Sender: FDA-Public Use
  Company Number: US-MISSION PHARMACAL COMPANY-1064052

PATIENT
  Age: 59 Year
  Sex: Female

DRUGS (1)
  1. THIOLA [Suspect]
     Active Substance: TIOPRONIN
     Indication: NEPHROLITHIASIS
     Route: 065
     Dates: start: 20160714

REACTIONS (6)
  - Myalgia [Unknown]
  - Pain of skin [Unknown]
  - Pain in extremity [None]
  - Gait disturbance [None]
  - Back pain [None]
  - Arthralgia [Unknown]
